FAERS Safety Report 17848317 (Version 4)
Quarter: 2020Q2

REPORT INFORMATION
  Report Type: Spontaneous
  Country: JP (occurrence: JP)
  Receive Date: 20200602
  Receipt Date: 20200622
  Transmission Date: 20200714
  Serious: Yes (Other)
  Sender: FDA-Public Use
  Company Number: JP-PFIZER INC-2020214493

PATIENT
  Age: 9 Month
  Sex: Female

DRUGS (1)
  1. FOSTOIN [Suspect]
     Active Substance: FOSPHENYTOIN SODIUM
     Dosage: UNK
     Route: 042

REACTIONS (4)
  - Acquired pyrimidine metabolism disorder [Unknown]
  - Oroticaciduria congenital [Unknown]
  - Product use issue [Unknown]
  - Off label use [Unknown]
